FAERS Safety Report 10544087 (Version 1)
Quarter: 2014Q4

REPORT INFORMATION
  Report Type: Spontaneous
  Country: US (occurrence: None)
  Receive Date: 20141024
  Receipt Date: 20141024
  Transmission Date: 20150529
  Serious: Yes (Life-Threatening, Hospitalization, Disabling)
  Sender: FDA-Public Use
  Company Number: None

PATIENT
  Age: 76 Year
  Sex: Female
  Weight: 65.5 kg

DRUGS (10)
  1. TENORMIN [Concomitant]
     Active Substance: ATENOLOL
  2. PREMARIN [Concomitant]
     Active Substance: ESTROGENS, CONJUGATED
  3. CRESTOR [Concomitant]
     Active Substance: ROSUVASTATIN CALCIUM
  4. COUMADIN [Concomitant]
     Active Substance: WARFARIN SODIUM
  5. MAXZIDE [Concomitant]
     Active Substance: HYDROCHLOROTHIAZIDE\TRIAMTERENE
  6. ATARAX [Concomitant]
     Active Substance: HYDROXYZINE\HYDROXYZINE HYDROCHLORIDE
  7. K-DUR [Concomitant]
     Active Substance: POTASSIUM CHLORIDE
  8. FLECAINIDE ACETATE. [Suspect]
     Active Substance: FLECAINIDE ACETATE
     Indication: ATRIAL FIBRILLATION
     Dosage: 1 PILL
     Route: 048
  9. ZYRTEC [Concomitant]
     Active Substance: CETIRIZINE HYDROCHLORIDE
  10. BENADRYL [Concomitant]
     Active Substance: DIPHENHYDRAMINE HYDROCHLORIDE

REACTIONS (17)
  - Hyporesponsive to stimuli [None]
  - Mental status changes [None]
  - General physical health deterioration [None]
  - Bundle branch block [None]
  - Toxicity to various agents [None]
  - Vomiting [None]
  - Accidental overdose [None]
  - Nausea [None]
  - International normalised ratio increased [None]
  - Memory impairment [None]
  - Blood potassium abnormal [None]
  - Electrocardiogram QRS complex prolonged [None]
  - Respiratory distress [None]
  - Dizziness [None]
  - Pulse abnormal [None]
  - Fatigue [None]
  - Heart injury [None]

NARRATIVE: CASE EVENT DATE: 20141016
